FAERS Safety Report 25141470 (Version 1)
Quarter: 2025Q1

REPORT INFORMATION
  Report Type: Spontaneous
  Country: US (occurrence: None)
  Receive Date: 20250331
  Receipt Date: 20250331
  Transmission Date: 20250408
  Serious: Yes (Hospitalization)
  Sender: FDA-CTU
  Company Number: None

PATIENT
  Sex: Female

DRUGS (11)
  1. LENALIDOMIDE [Suspect]
     Active Substance: LENALIDOMIDE
     Indication: Plasma cell myeloma
     Dosage: FREQUENCY : DAILY;?
     Dates: start: 20250212
  2. ACYCLOVIR [Concomitant]
     Active Substance: ACYCLOVIR
  3. ALBUTEROL POW SULFATE [Concomitant]
  4. ASPIRIN 81 TAB 81 MG EC [Concomitant]
  5. ASPIRIN LOW TAB 81 MG EC [Concomitant]
  6. BACLOFEN [Concomitant]
     Active Substance: BACLOFEN
  7. BENADRYL ALL LIO 12.5/5ML [Concomitant]
  8. CALCIUM TAB 500MG [Concomitant]
  9. CARVEDI LOL TAB 12.5MG [Concomitant]
  10. CATHFLO ACTI INJ 2MG [Concomitant]
  11. CETIRIZINE CHW 10MG [Concomitant]

REACTIONS (1)
  - Hospitalisation [None]
